FAERS Safety Report 12849513 (Version 1)
Quarter: 2016Q4

REPORT INFORMATION
  Report Type: Report from Study
  Country: None (occurrence: US)
  Receive Date: 20161014
  Receipt Date: 20161014
  Transmission Date: 20170207
  Serious: Yes (Hospitalization, Other)
  Sender: FDA-Public Use
  Company Number: US-ABBVIE-16K-163-1723198-00

PATIENT
  Age: 56 Year
  Sex: Female
  Weight: 60.38 kg

DRUGS (11)
  1. METHOTREXATE. [Suspect]
     Active Substance: METHOTREXATE
     Indication: PRODUCT USED FOR UNKNOWN INDICATION
     Route: 065
  2. GABAPENTIN. [Concomitant]
     Active Substance: GABAPENTIN
     Indication: PAIN
  3. BUPROPION. [Concomitant]
     Active Substance: BUPROPION
     Indication: EX-TOBACCO USER
  4. HUMIRA [Suspect]
     Active Substance: ADALIMUMAB
     Indication: RHEUMATOID ARTHRITIS
     Route: 058
     Dates: start: 2014
  5. NEXIUM [Concomitant]
     Active Substance: ESOMEPRAZOLE MAGNESIUM
     Indication: GASTROOESOPHAGEAL REFLUX DISEASE
  6. PROTONIX [Concomitant]
     Active Substance: PANTOPRAZOLE SODIUM
     Indication: BARRETT^S OESOPHAGUS
  7. GABAPENTIN. [Concomitant]
     Active Substance: GABAPENTIN
     Indication: AFFECTIVE DISORDER
  8. BAYER BACK AND BODY EXTRA STRENGTH [Suspect]
     Active Substance: ASPIRIN\CAFFEINE
     Indication: PAIN
     Route: 065
  9. PROTONIX [Concomitant]
     Active Substance: PANTOPRAZOLE SODIUM
     Indication: GASTROOESOPHAGEAL REFLUX DISEASE
  10. AMITRIPTYLINE [Concomitant]
     Active Substance: AMITRIPTYLINE
     Indication: PRODUCT USED FOR UNKNOWN INDICATION
  11. IBUPROFEN. [Concomitant]
     Active Substance: IBUPROFEN
     Indication: INFLAMMATION

REACTIONS (5)
  - Muscle spasms [Recovered/Resolved]
  - Abdominal pain [Recovered/Resolved]
  - Intra-abdominal fluid collection [Recovering/Resolving]
  - Hepatic enzyme increased [Recovered/Resolved]
  - Arthralgia [Not Recovered/Not Resolved]

NARRATIVE: CASE EVENT DATE: 2015
